FAERS Safety Report 15626611 (Version 1)
Quarter: 2018Q4

REPORT INFORMATION
  Report Type: Spontaneous
  Country: FR (occurrence: FR)
  Receive Date: 20181116
  Receipt Date: 20181116
  Transmission Date: 20190205
  Serious: Yes (Other)
  Sender: FDA-Public Use
  Company Number: FR-PROVELL PHARMACEUTICALS-2058944

PATIENT
  Age: 89 Year
  Sex: Female

DRUGS (10)
  1. APIXABAN [Suspect]
     Active Substance: APIXABAN
     Route: 048
     Dates: start: 20180930
  2. TAREG [Suspect]
     Active Substance: VALSARTAN
     Route: 048
  3. INEXIUM [Concomitant]
     Active Substance: ESOMEPRAZOLE
     Route: 048
  4. ACETYLSALICYLIC ACID [Suspect]
     Active Substance: ASPIRIN
     Route: 048
  5. OFLOCET [Concomitant]
     Active Substance: OFLOXACIN
     Route: 048
  6. APIXABAN [Suspect]
     Active Substance: APIXABAN
     Route: 048
     Dates: start: 20171121, end: 20180924
  7. EUTHYROX [Suspect]
     Active Substance: LEVOTHYROXINE SODIUM
     Indication: THYROID DISORDER
     Route: 048
  8. CORDARONE [Suspect]
     Active Substance: AMIODARONE HYDROCHLORIDE
     Route: 048
  9. PRAVASTATINE [Concomitant]
     Active Substance: PRAVASTATIN
     Route: 048
  10. FORLAX [Concomitant]
     Active Substance: POLYETHYLENE GLYCOL 4000
     Route: 048

REACTIONS (1)
  - Carotid artery stenosis [Recovered/Resolved]

NARRATIVE: CASE EVENT DATE: 20180927
